FAERS Safety Report 20567436 (Version 5)
Quarter: 2022Q3

REPORT INFORMATION
  Report Type: Report from Study
  Country: US (occurrence: US)
  Receive Date: 20220308
  Receipt Date: 20220912
  Transmission Date: 20221027
  Serious: Yes (Other)
  Sender: FDA-Public Use
  Company Number: NVSC2022US053546

PATIENT
  Sex: Female

DRUGS (5)
  1. ENTRESTO [Suspect]
     Active Substance: SACUBITRIL\VALSARTAN
     Indication: Product used for unknown indication
     Dosage: 1 DOSAGE FORM, BID (49/51 MG)
     Route: 048
  2. ENTRESTO [Suspect]
     Active Substance: SACUBITRIL\VALSARTAN
     Dosage: 1 DOSAGE FORM, BID 24/26 MG
     Route: 048
  3. ENTRESTO [Suspect]
     Active Substance: SACUBITRIL\VALSARTAN
     Dosage: 0.5 DOSAGE FORM (49/51 MG), BID
     Route: 065
  4. CORTISONE [Suspect]
     Active Substance: CORTISONE
     Indication: Pain in extremity
     Dosage: UNK
     Route: 065
  5. CORTISONE [Suspect]
     Active Substance: CORTISONE
     Indication: Osteoarthritis

REACTIONS (11)
  - Blood glucose increased [Recovering/Resolving]
  - Cardiac failure congestive [Unknown]
  - COVID-19 [Recovered/Resolved]
  - Cough [Recovered/Resolved]
  - Sleep disorder [Not Recovered/Not Resolved]
  - Pain in extremity [Recovering/Resolving]
  - Osteoarthritis [Recovering/Resolving]
  - Chest pain [Not Recovered/Not Resolved]
  - Hypotension [Recovering/Resolving]
  - Fatigue [Recovering/Resolving]
  - Wrong technique in product usage process [Not Recovered/Not Resolved]
